FAERS Safety Report 22540366 (Version 1)
Quarter: 2023Q2

REPORT INFORMATION
  Report Type: Spontaneous
  Country: KR (occurrence: KR)
  Receive Date: 20230609
  Receipt Date: 20230609
  Transmission Date: 20230721
  Serious: Yes (Other)
  Sender: FDA-Public Use
  Company Number: KR-MYLANLABS-2023M1057309

PATIENT
  Age: 56 Year
  Sex: Male

DRUGS (3)
  1. CELEBREX [Suspect]
     Active Substance: CELECOXIB
     Indication: Pain
     Dosage: 200 MILLIGRAM, BID
     Route: 048
     Dates: start: 20190117, end: 20190208
  2. PANTOPRAZOLE SODIUM [Suspect]
     Active Substance: PANTOPRAZOLE SODIUM
     Indication: Pain
     Dosage: 20 MILLIGRAM, BID
     Route: 048
     Dates: start: 20190117, end: 20190208
  3. EPERISONE HYDROCHLORIDE [Suspect]
     Active Substance: EPERISONE HYDROCHLORIDE
     Indication: Pain
     Dosage: 50 MILLIGRAM, BID
     Route: 048
     Dates: start: 20190117, end: 20190208

REACTIONS (1)
  - Quadriplegia [Recovered/Resolved]

NARRATIVE: CASE EVENT DATE: 20190211
